FAERS Safety Report 5712783-9 (Version None)
Quarter: 2008Q2

REPORT INFORMATION
  Report Type: 
  Country: None (occurrence: None)
  Receive Date: 20080421
  Receipt Date: 20080421
  Transmission Date: 20081010
  Serious: Yes (Other)
  Sender: FDA-Public Use
  Company Number: None

PATIENT
  Sex: Female
  Weight: 92.9874 kg

DRUGS (1)
  1. ZOLPIDEM [Suspect]
     Indication: INSOMNIA
     Dosage: 10 MG Q HS PO NIGHTLY
     Route: 048
     Dates: start: 20080201, end: 20080415

REACTIONS (3)
  - ANGER [None]
  - DRUG INEFFECTIVE [None]
  - FATIGUE [None]
